FAERS Safety Report 4960039-4 (Version None)
Quarter: 2006Q1

REPORT INFORMATION
  Report Type: 
  Country: None (occurrence: None)
  Receive Date: 20060327
  Receipt Date: 20060314
  Transmission Date: 20060701
  Serious: Yes (Other)
  Sender: FDA-Public Use
  Company Number: S06-USA-00516-01

PATIENT
  Age: 45 Year
  Sex: Female
  Weight: 40.8237 kg

DRUGS (12)
  1. NAMENDA [Suspect]
     Indication: NERVOUS SYSTEM DISORDER
     Dates: start: 20051201, end: 20060109
  2. NAMENDA [Suspect]
     Indication: NERVOUS SYSTEM DISORDER
     Dosage: 5 MG BID PO
     Route: 048
     Dates: start: 20060110
  3. TOPAMAX [Concomitant]
  4. CYMBALTA [Concomitant]
  5. OXYCODONE [Concomitant]
  6. AMITRIPTYLINE HCL [Concomitant]
  7. ZOFRAN [Concomitant]
  8. ZANAFLEX [Concomitant]
  9. PROVIGIL [Concomitant]
  10. PREMPRO [Concomitant]
  11. PERCOCET [Concomitant]
  12. NORTRIPTYLINE HCL [Concomitant]

REACTIONS (5)
  - HEADACHE [None]
  - HYPOMANIA [None]
  - LEGAL PROBLEM [None]
  - MANIA [None]
  - ROAD TRAFFIC ACCIDENT [None]
